FAERS Safety Report 7671403-7 (Version None)
Quarter: 2011Q3

REPORT INFORMATION
  Report Type: 
  Country: None (occurrence: None)
  Receive Date: 20110809
  Receipt Date: 20110726
  Transmission Date: 20111222
  Serious: Yes (Hospitalization, Other)
  Sender: FDA-Public Use
  Company Number: CA-ELI_LILLY_AND_COMPANY-CA201107006925

PATIENT
  Sex: Male

DRUGS (15)
  1. ALTACE [Concomitant]
  2. ZYPREXA [Suspect]
     Dosage: 5 MG, QD
  3. ENTROPHEN [Concomitant]
  4. ZYPREXA [Suspect]
     Dosage: 7.5 MG, QD
  5. MAXERAN [Concomitant]
  6. PANTOPRAZOLE [Concomitant]
  7. ZYPREXA ZYDIS [Suspect]
     Dosage: 5 MG, BID
  8. NOZINAN [Concomitant]
  9. ZYPREXA [Suspect]
     Dosage: 10 MG, QD
  10. ZYPREXA [Suspect]
     Dosage: 2.5 MG, QD
  11. BISOPROLOL FUMARATE [Concomitant]
  12. LIPITOR [Concomitant]
  13. ATIVAN [Concomitant]
  14. TRAZODONE HCL [Concomitant]
  15. ZOPICLONE [Concomitant]

REACTIONS (9)
  - CELLULITIS [None]
  - ILEUS [None]
  - QUALITY OF LIFE DECREASED [None]
  - NEPHROLITHIASIS [None]
  - ALANINE AMINOTRANSFERASE INCREASED [None]
  - DIABETES MELLITUS [None]
  - ERECTILE DYSFUNCTION [None]
  - ASPARTATE AMINOTRANSFERASE INCREASED [None]
  - CORONARY ARTERY DISEASE [None]
